FAERS Safety Report 6139558-3 (Version None)
Quarter: 2009Q2

REPORT INFORMATION
  Report Type: 
  Country: None (occurrence: None)
  Receive Date: 20090401
  Receipt Date: 20090324
  Transmission Date: 20091009
  Serious: Yes (Hospitalization)
  Sender: FDA-Public Use
  Company Number: DK-NOVOPROD-284189

PATIENT
  Sex: Female
  Weight: 10.8 kg

DRUGS (5)
  1. NORDITROPIN NORDIFLEX [Suspect]
     Indication: PRADER-WILLI SYNDROME
     Dosage: .3 MG, QD
     Route: 058
     Dates: start: 20030616
  2. TRIMETHOPRIM [Concomitant]
     Indication: PROPHYLAXIS URINARY TRACT INFECTION
     Route: 048
  3. SPEKTRAMOX                         /01000301/ [Concomitant]
     Indication: BACTERIA URINE IDENTIFIED
     Dosage: 10.5 ML (50MG+12.5 MG/ML), QD
     Route: 048
     Dates: start: 20040423, end: 20040430
  4. SPEKTRAMOX                         /01000301/ [Concomitant]
     Dosage: 10.5 ML (50 MG+12.5 MG/ML), QD
     Route: 048
     Dates: start: 20040505, end: 20040515
  5. NITROFURANTOIN [Concomitant]
     Indication: PROPHYLAXIS URINARY TRACT INFECTION
     Route: 048

REACTIONS (2)
  - SCOLIOSIS [None]
  - SNORING [None]
